FAERS Safety Report 14194012 (Version 1)
Quarter: 2017Q4

REPORT INFORMATION
  Report Type: Spontaneous
  Country: FR (occurrence: FR)
  Receive Date: 20171116
  Receipt Date: 20171116
  Transmission Date: 20180321
  Serious: Yes (Hospitalization, Other)
  Sender: FDA-Public Use
  Company Number: FR-BRISTOL-MYERS SQUIBB COMPANY-BMS-2017-015424

PATIENT
  Age: 61 Year
  Sex: Female

DRUGS (5)
  1. COUMADINE [Suspect]
     Active Substance: WARFARIN SODIUM
     Indication: CARDIAC VALVE DISEASE
     Dosage: 1.5 TAB, QD (EVERY EVENING)
     Route: 065
     Dates: start: 201608, end: 201704
  2. COUMADINE [Suspect]
     Active Substance: WARFARIN SODIUM
     Indication: HAEMORRHAGE
     Route: 065
  3. COUMADINE [Suspect]
     Active Substance: WARFARIN SODIUM
     Indication: MITRAL VALVE STENOSIS
     Dosage: 2 TAB, UNK
     Route: 065
  4. COUMADINE [Suspect]
     Active Substance: WARFARIN SODIUM
     Indication: ARRHYTHMIA
     Route: 065
  5. HEPARIN [Concomitant]
     Active Substance: HEPARIN SODIUM
     Indication: PRODUCT USED FOR UNKNOWN INDICATION
     Dosage: UNK
     Route: 065

REACTIONS (9)
  - Contusion [Unknown]
  - Epistaxis [Unknown]
  - Haematoma [Unknown]
  - Subcutaneous haematoma [Unknown]
  - International normalised ratio decreased [Unknown]
  - Headache [Unknown]
  - Cerebrovascular accident [Unknown]
  - Haemoptysis [Unknown]
  - Pruritus [Unknown]
